FAERS Safety Report 16071716 (Version 2)
Quarter: 2019Q1

REPORT INFORMATION
  Report Type: Spontaneous
  Country: US (occurrence: US)
  Receive Date: 20190314
  Receipt Date: 20190320
  Transmission Date: 20190418
  Serious: No
  Sender: FDA-Public Use
  Company Number: US-UNITED THERAPEUTICS-UNT-2019-004494

PATIENT
  Sex: Female
  Weight: 64.85 kg

DRUGS (2)
  1. REMODULIN [Suspect]
     Active Substance: TREPROSTINIL
     Indication: PULMONARY ARTERIAL HYPERTENSION
     Dosage: 0.023 ?G/KG, CONTINUING
     Route: 058
     Dates: start: 20180723
  2. OPSUMIT [Concomitant]
     Active Substance: MACITENTAN
     Indication: PRODUCT USED FOR UNKNOWN INDICATION
     Dosage: UNK
     Route: 065

REACTIONS (6)
  - Infusion site swelling [Unknown]
  - Infusion site infection [Unknown]
  - Rash [Unknown]
  - Fungal infection [Unknown]
  - Infusion site erythema [Unknown]
  - Infusion site pain [Unknown]
